FAERS Safety Report 10423670 (Version 2)
Quarter: 2014Q4

REPORT INFORMATION
  Report Type: Spontaneous
  Country: US (occurrence: None)
  Receive Date: 20140722
  Receipt Date: 20141121
  Transmission Date: 20150528
  Serious: No
  Sender: FDA-Public Use
  Company Number: 163-10004-14062489

PATIENT
  Age: 61 Year
  Sex: Female

DRUGS (5)
  1. TRAMADOL [Concomitant]
     Active Substance: TRAMADOL
  2. DUEXIS (FAMOTIDINE W/IBUPROFEN) [Concomitant]
  3. OTEZLA [Suspect]
     Active Substance: APREMILAST
     Indication: PSORIATIC ARTHROPATHY
     Route: 048
     Dates: start: 20140616
  4. AMBIEN [Concomitant]
     Active Substance: ZOLPIDEM TARTRATE
  5. ZANAFLEX [Concomitant]
     Active Substance: TIZANIDINE HYDROCHLORIDE

REACTIONS (1)
  - Fatigue [None]

NARRATIVE: CASE EVENT DATE: 2014
